FAERS Safety Report 7309257-0 (Version None)
Quarter: 2011Q1

REPORT INFORMATION
  Report Type: 
  Country: None (occurrence: None)
  Receive Date: 20110223
  Receipt Date: 20110216
  Transmission Date: 20110831
  Serious: Yes (Hospitalization)
  Sender: FDA-Public Use
  Company Number: FR-PFIZER INC-2011033968

PATIENT
  Age: 30 Year
  Sex: Female

DRUGS (5)
  1. TRAMADOL HCL [Suspect]
     Route: 048
  2. LYRICA [Suspect]
  3. RIVOTRIL [Suspect]
     Route: 048
  4. NEXEN [Suspect]
     Dosage: UNK
     Route: 048
     Dates: start: 20100301
  5. CERAZETTE [Suspect]
     Dosage: UNK
     Route: 048

REACTIONS (2)
  - PAIN [None]
  - FOCAL NODULAR HYPERPLASIA [None]
